FAERS Safety Report 24742408 (Version 1)
Quarter: 2024Q4

REPORT INFORMATION
  Report Type: Spontaneous
  Country: US (occurrence: None)
  Receive Date: 20241214
  Receipt Date: 20241214
  Transmission Date: 20250115
  Serious: No
  Sender: Public
  Company Number: None

PATIENT
  Age: 40 Year
  Sex: Male
  Weight: 99 kg

DRUGS (1)
  1. INVEGA SUSTENNA [Suspect]
     Active Substance: PALIPERIDONE PALMITATE
     Indication: Schizophrenia
     Dosage: 1.5 ML EVERY 28 DAYS INTRAMUSCULAR
     Route: 030

REACTIONS (4)
  - Injection site pain [None]
  - Injection site pain [None]
  - Mobility decreased [None]
  - Discomfort [None]

NARRATIVE: CASE EVENT DATE: 20241113
